FAERS Safety Report 7334664-X (Version None)
Quarter: 2011Q1

REPORT INFORMATION
  Report Type: 
  Country: None (occurrence: None)
  Receive Date: 20110307
  Receipt Date: 20100118
  Transmission Date: 20110831
  Serious: Yes (Death, Other)
  Sender: FDA-Public Use
  Company Number: GB-PFIZER INC-2008096354

PATIENT
  Age: 74 Year
  Sex: Male

DRUGS (8)
  1. AMOXICILLIN [Concomitant]
     Dosage: 500 MG, 3X/DAY
  2. LEVOTHYROXINE SODIUM [Concomitant]
  3. AMLODIPINE BESILATE [Suspect]
     Dosage: 5 MG, 1X/DAY
     Route: 048
  4. PERINDOPRIL [Suspect]
     Dosage: 8 MG, 1X/DAY
     Route: 048
  5. ACETYLSALICYLIC ACID [Suspect]
     Dosage: 75 MG, 1X/DAY
     Route: 048
  6. OMEPRAZOLE [Suspect]
     Dosage: 20 MG, 1X/DAY
     Route: 048
  7. SIMVASTATIN [Suspect]
     Route: 048
  8. IBUPROFEN [Suspect]
     Route: 048

REACTIONS (15)
  - OROPHARYNGEAL PAIN [None]
  - DECREASED APPETITE [None]
  - LOWER RESPIRATORY TRACT INFECTION [None]
  - RASH [None]
  - WEIGHT DECREASED [None]
  - RENAL FAILURE ACUTE [None]
  - DERMATOMYOSITIS [None]
  - RENAL TUBULAR NECROSIS [None]
  - ALVEOLITIS [None]
  - HAEMOPTYSIS [None]
  - ACUTE RESPIRATORY DISTRESS SYNDROME [None]
  - RESPIRATORY FAILURE [None]
  - MUSCULAR WEAKNESS [None]
  - COUGH [None]
  - DRUG ERUPTION [None]
